FAERS Safety Report 15306122 (Version 2)
Quarter: 2018Q3

REPORT INFORMATION
  Report Type: Spontaneous
  Country: US (occurrence: US)
  Receive Date: 20180822
  Receipt Date: 20180910
  Transmission Date: 20181010
  Serious: No
  Sender: FDA-Public Use
  Company Number: US-PFIZER INC-2018333810

PATIENT
  Age: 61 Year
  Sex: Female

DRUGS (10)
  1. CHANTIX [Suspect]
     Active Substance: VARENICLINE TARTRATE
     Indication: SMOKING CESSATION THERAPY
     Dosage: 2 DF (TWO OF THE LOWER DOSE FOR TWO WEEKS)
     Route: 048
     Dates: start: 201407
  2. CHANTIX [Suspect]
     Active Substance: VARENICLINE TARTRATE
     Dosage: THE DOSE WENT UP FOR TWO WEEKS
     Route: 048
  3. TRAZODONE [Concomitant]
     Active Substance: TRAZODONE HYDROCHLORIDE
     Indication: SLEEP DISORDER
     Dosage: 150 MG, 2X/DAY
     Route: 048
  4. GABAPENTIN. [Concomitant]
     Active Substance: GABAPENTIN
     Indication: OSTEOARTHRITIS
  5. VENLAFAXINE [Concomitant]
     Active Substance: VENLAFAXINE HYDROCHLORIDE
     Indication: DEPRESSION
     Dosage: 150 MG, 2X/DAY
     Route: 048
  6. CLONAZEPAM. [Concomitant]
     Active Substance: CLONAZEPAM
     Indication: ANXIETY
     Dosage: 2 MG, 4X/DAY
     Route: 048
  7. ATORVASTATIN [Concomitant]
     Active Substance: ATORVASTATIN
     Indication: BLOOD CHOLESTEROL ABNORMAL
     Dosage: UNK
  8. GABAPENTIN. [Concomitant]
     Active Substance: GABAPENTIN
     Indication: MUSCULAR DYSTROPHY
     Dosage: 300 MG, 3X/DAY
     Route: 048
  9. GABAPENTIN. [Concomitant]
     Active Substance: GABAPENTIN
     Indication: ARTHRITIS
  10. ATORVASTATIN [Concomitant]
     Active Substance: ATORVASTATIN
     Dosage: 10 MG, 1X/DAY
     Route: 048

REACTIONS (4)
  - Nausea [Recovered/Resolved]
  - Weight decreased [Recovered/Resolved]
  - Malaise [Recovered/Resolved]
  - Gait disturbance [Recovered/Resolved]
